FAERS Safety Report 7965519-5 (Version None)
Quarter: 2011Q4

REPORT INFORMATION
  Report Type: 
  Country: None (occurrence: None)
  Receive Date: 20111208
  Receipt Date: 20111130
  Transmission Date: 20120403
  Serious: Yes (Death)
  Sender: FDA-Public Use
  Company Number: US-B.I. PHARMACEUTICALS,INC./RIDGEFIELD-2011-EU-00863GD

PATIENT

DRUGS (1)
  1. DABIGATRAN ETEXILATE [Suspect]

REACTIONS (5)
  - HAEMORRHAGE INTRACRANIAL [None]
  - EXSANGUINATION [None]
  - BRAIN INJURY [None]
  - ROAD TRAFFIC ACCIDENT [None]
  - COAGULOPATHY [None]
